FAERS Safety Report 6043681-1 (Version None)
Quarter: 2009Q1

REPORT INFORMATION
  Report Type: 
  Country: None (occurrence: None)
  Receive Date: 20090115
  Receipt Date: 20090102
  Transmission Date: 20090719
  Serious: Yes (Hospitalization)
  Sender: FDA-Public Use
  Company Number: 1000003441

PATIENT
  Age: 90 Year
  Sex: Female

DRUGS (10)
  1. CITALOPRAM HYDROBROMIDE [Suspect]
     Indication: DEPRESSION
     Dosage: ORAL
     Route: 048
     Dates: end: 20081001
  2. MIRTAZAPINE [Suspect]
     Indication: DEPRESSION
     Dates: start: 20081001, end: 20081028
  3. PAMOL (TABLETS) [Concomitant]
  4. LACTULOS ALTERNOVA SYRUP [Concomitant]
  5. AMLODIPIN ACCORD [Concomitant]
  6. LEVAXIN (TABLETS) [Concomitant]
  7. MALVITONA (TABLETS) [Concomitant]
  8. SUSCARD (TABLETS) [Concomitant]
  9. ASPIRIN [Concomitant]
  10. BETOPTIC EYE DROPS [Concomitant]

REACTIONS (6)
  - AGGRESSION [None]
  - ANXIETY [None]
  - DRUG INTERACTION [None]
  - FALL [None]
  - HALLUCINATION [None]
  - MANIA [None]
